FAERS Safety Report 14580527 (Version 1)
Quarter: 2018Q1

REPORT INFORMATION
  Report Type: Spontaneous
  Country: US (occurrence: US)
  Receive Date: 20180228
  Receipt Date: 20180228
  Transmission Date: 20180509
  Serious: No
  Sender: FDA-Public Use
  Company Number: US-INSYS THERAPEUTICS, INC-INS201703-000227

PATIENT
  Sex: Male

DRUGS (2)
  1. SUBSYS [Suspect]
     Active Substance: FENTANYL
     Indication: PAIN IN EXTREMITY
  2. SUBSYS [Suspect]
     Active Substance: FENTANYL
     Indication: NEURALGIA
     Route: 060

REACTIONS (1)
  - Dizziness [Unknown]
